FAERS Safety Report 6974819-7 (Version None)
Quarter: 2010Q3

REPORT INFORMATION
  Report Type: 
  Country: None (occurrence: None)
  Receive Date: 20100909
  Receipt Date: 20081211
  Transmission Date: 20110219
  Serious: No
  Sender: FDA-Public Use
  Company Number: US-WYE-H07214808

PATIENT

DRUGS (2)
  1. PRISTIQ [Suspect]
  2. ALCOHOL [Suspect]
     Dosage: 2 BOTTLES OF WINE

REACTIONS (1)
  - DRUG EFFECT DECREASED [None]
